FAERS Safety Report 20279072 (Version 3)
Quarter: 2022Q1

REPORT INFORMATION
  Report Type: Report from Study
  Country: CO (occurrence: CO)
  Receive Date: 20220103
  Receipt Date: 20220209
  Transmission Date: 20220423
  Serious: Yes (Hospitalization)
  Sender: FDA-Public Use
  Company Number: CO-NOVARTISPH-NVSC2021CO300051

PATIENT
  Sex: Female

DRUGS (1)
  1. ELTROMBOPAG OLAMINE [Suspect]
     Active Substance: ELTROMBOPAG OLAMINE
     Indication: Immune thrombocytopenia
     Dosage: 50 MG, QD
     Route: 048
     Dates: start: 20211213

REACTIONS (7)
  - Condition aggravated [Unknown]
  - Pain [Unknown]
  - Headache [Unknown]
  - Herpes virus infection [Unknown]
  - Malaise [Unknown]
  - Burning sensation [Unknown]
  - Drug intolerance [Unknown]
